FAERS Safety Report 5130506-1 (Version None)
Quarter: 2006Q4

REPORT INFORMATION
  Report Type: 
  Country: None (occurrence: None)
  Receive Date: 20061019
  Receipt Date: 20061010
  Transmission Date: 20070319
  Serious: Yes (Life-Threatening, Hospitalization)
  Sender: FDA-Public Use
  Company Number: PAD-06230

PATIENT
  Age: 73 Year
  Sex: Male
  Weight: 70 kg

DRUGS (10)
  1. AUGMENTIN [Suspect]
     Indication: LUNG INFECTION
     Route: 048
     Dates: start: 20060711, end: 20060808
  2. MEDIATENSYL [Concomitant]
     Indication: HYPERTENSION
     Route: 048
     Dates: start: 20060220, end: 20060905
  3. PERINDOPRIL ERBUMINE [Concomitant]
     Indication: HYPERTENSION
     Route: 048
     Dates: start: 20060220, end: 20060905
  4. EFFEXOR [Concomitant]
     Dosage: 75MG PER DAY
     Route: 048
     Dates: start: 20060902, end: 20060903
  5. PHYSIOTENS [Concomitant]
     Indication: HYPERTENSION
     Route: 048
     Dates: start: 20060220, end: 20060905
  6. FUNGIZONE [Concomitant]
     Indication: ANTIFUNGAL PROPHYLAXIS
     Route: 002
  7. CLARITIN [Concomitant]
     Indication: RASH
     Route: 065
     Dates: start: 20060601
  8. ACENOCOUMAROL [Concomitant]
     Indication: ATRIAL FIBRILLATION
     Route: 065
  9. LASIX [Concomitant]
     Indication: HYPERTENSION
     Route: 065
  10. LOXEN [Concomitant]
     Indication: HYPERTENSION
     Dosage: 50MG TWICE PER DAY
     Route: 065

REACTIONS (14)
  - ACUTE PULMONARY OEDEMA [None]
  - BLOOD BILIRUBIN INCREASED [None]
  - CHOLESTASIS [None]
  - CYTOLYTIC HEPATITIS [None]
  - HAEMOPTYSIS [None]
  - HEPATIC FAILURE [None]
  - HEPATOCELLULAR DAMAGE [None]
  - HYPOKALAEMIA [None]
  - HYPONATRAEMIA [None]
  - INTERNATIONAL NORMALISED RATIO INCREASED [None]
  - JAUNDICE [None]
  - MALAISE [None]
  - PROTHROMBIN LEVEL DECREASED [None]
  - TRANSAMINASES INCREASED [None]
